FAERS Safety Report 13075300 (Version 1)
Quarter: 2016Q4

REPORT INFORMATION
  Report Type: Spontaneous
  Country: FR (occurrence: FR)
  Receive Date: 20161230
  Receipt Date: 20161230
  Transmission Date: 20170207
  Serious: Yes (Hospitalization)
  Sender: FDA-Public Use
  Company Number: FR-TEVA-722832ROM

PATIENT
  Age: 71 Year
  Sex: Female

DRUGS (2)
  1. VOGALENE [Suspect]
     Active Substance: METOPIMAZINE
     Indication: GASTROINTESTINAL DISORDER
     Route: 048
     Dates: start: 20160908
  2. LEVOFLOXACINE 500 MG PCH [Suspect]
     Active Substance: LEVOFLOXACIN
     Dosage: 2 DOSAGE FORMS DAILY;
     Route: 048
     Dates: start: 20160908, end: 20160913

REACTIONS (1)
  - Encephalitis [Recovered/Resolved]

NARRATIVE: CASE EVENT DATE: 20160913
